FAERS Safety Report 9421302 (Version 1)
Quarter: 2013Q3

REPORT INFORMATION
  Report Type: Spontaneous
  Country: JP (occurrence: JP)
  Receive Date: 20130725
  Receipt Date: 20130725
  Transmission Date: 20140515
  Serious: Yes (Other)
  Sender: FDA-Public Use
  Company Number: JP-ASTRAZENECA-2013SE55757

PATIENT
  Age: 66 Year
  Sex: Male

DRUGS (2)
  1. SEROQUEL [Suspect]
     Route: 048
  2. OTHER MEDICATIONS [Concomitant]

REACTIONS (2)
  - Pancytopenia [Unknown]
  - Intentional drug misuse [Unknown]
